FAERS Safety Report 18278788 (Version 1)
Quarter: 2020Q3

REPORT INFORMATION
  Report Type: Spontaneous
  Country: US (occurrence: US)
  Receive Date: 20200917
  Receipt Date: 20200917
  Transmission Date: 20201103
  Serious: No
  Sender: FDA-Public Use
  Company Number: None

PATIENT
  Age: 54 Year
  Sex: Male
  Weight: 142.4 kg

DRUGS (17)
  1. MULTI VITAMIN DAILY [Concomitant]
  2. FLONASE [Concomitant]
     Active Substance: FLUTICASONE PROPIONATE
  3. DIAZEPAM. [Concomitant]
     Active Substance: DIAZEPAM
  4. FENOFIBRATE. [Concomitant]
     Active Substance: FENOFIBRATE
  5. TOBRADEX [Concomitant]
     Active Substance: DEXAMETHASONE\TOBRAMYCIN
  6. OFLOXACIN. [Concomitant]
     Active Substance: OFLOXACIN
  7. ONDANSETRON [Concomitant]
     Active Substance: ONDANSETRON
  8. OMEPRAZOLE. [Concomitant]
     Active Substance: OMEPRAZOLE
  9. DEXAMETHASONE. [Concomitant]
     Active Substance: DEXAMETHASONE
  10. PROMETHAZINE HCL [Concomitant]
     Active Substance: PROMETHAZINE HYDROCHLORIDE
  11. WARFARIN SODIUM. [Concomitant]
     Active Substance: WARFARIN SODIUM
  12. METOPROLOL SUCCINATE ER [Concomitant]
     Active Substance: METOPROLOL SUCCINATE
  13. QUETIAPINE FUMARATE ER [Concomitant]
     Active Substance: QUETIAPINE FUMARATE
  14. PERCOCET [Concomitant]
     Active Substance: ACETAMINOPHEN\OXYCODONE HYDROCHLORIDE
  15. FENTANYL. [Concomitant]
     Active Substance: FENTANYL
  16. CYCLOPHOSPHAMIDE. [Suspect]
     Active Substance: CYCLOPHOSPHAMIDE
     Indication: PLASMA CELL MYELOMA
     Dosage: ?          OTHER FREQUENCY:DAYS 1, 8, 15 + 22;?
     Route: 048
     Dates: start: 20191204
  17. PLAVIX [Concomitant]
     Active Substance: CLOPIDOGREL BISULFATE

REACTIONS (3)
  - Insomnia [None]
  - Diarrhoea [None]
  - Fatigue [None]

NARRATIVE: CASE EVENT DATE: 20200917
